FAERS Safety Report 5909487-6 (Version None)
Quarter: 2008Q4

REPORT INFORMATION
  Report Type: 
  Country: None (occurrence: None)
  Receive Date: 20081002
  Receipt Date: 20080922
  Transmission Date: 20090506
  Serious: Yes (Hospitalization, Other)
  Sender: FDA-Public Use
  Company Number: 100#08#2008-04865

PATIENT
  Age: 61 Year
  Sex: Female

DRUGS (4)
  1. LEUCOVORIN CALCIUM [Suspect]
     Indication: COLORECTAL CANCER
  2. FLUOROURACIL [Suspect]
     Indication: COLORECTAL CANCER
  3. AVASTIN [Suspect]
     Indication: COLORECTAL CANCER
     Dosage: 5 MG/KG (ON DAYS 1, 15 AND 29 OF THE CYCLE)
  4. IRINOTECAN HCL [Suspect]
     Indication: COLORECTAL CANCER

REACTIONS (2)
  - INTESTINAL ISCHAEMIA [None]
  - INTESTINAL PERFORATION [None]
